FAERS Safety Report 9894624 (Version 3)
Quarter: 2015Q3

REPORT INFORMATION
  Report Type: Spontaneous
  Country: US (occurrence: US)
  Receive Date: 20140213
  Receipt Date: 20150721
  Transmission Date: 20151125
  Serious: No
  Sender: FDA-Public Use
  Company Number: US-GILEAD-2012-0053220

PATIENT
  Age: 63 Year
  Sex: Female

DRUGS (1)
  1. CAYSTON [Suspect]
     Active Substance: AZTREONAM
     Indication: PRODUCT USED FOR UNKNOWN INDICATION
     Dosage: UNK
     Route: 048

REACTIONS (7)
  - Headache [Recovering/Resolving]
  - Bronchiectasis [Recovering/Resolving]
  - Unevaluable event [Unknown]
  - Feeling abnormal [Recovering/Resolving]
  - Hearing disability [Unknown]
  - Upper respiratory tract congestion [Recovering/Resolving]
  - Oropharyngeal pain [Recovering/Resolving]

NARRATIVE: CASE EVENT DATE: 20120309
